FAERS Safety Report 24669828 (Version 1)
Quarter: 2024Q4

REPORT INFORMATION
  Report Type: Spontaneous
  Country: CN (occurrence: CN)
  Receive Date: 20241127
  Receipt Date: 20241127
  Transmission Date: 20250115
  Serious: Yes (Hospitalization)
  Sender: PFIZER
  Company Number: CN-PFIZER INC-PV202400152041

PATIENT
  Age: 46 Year
  Sex: Female

DRUGS (1)
  1. EPIRUBICIN [Suspect]
     Active Substance: EPIRUBICIN
     Indication: Chemotherapy
     Dosage: 126 MG, 1X/DAY
     Route: 041
     Dates: start: 20241117, end: 20241118

REACTIONS (2)
  - Vomiting [Not Recovered/Not Resolved]
  - Feeding disorder [Not Recovered/Not Resolved]

NARRATIVE: CASE EVENT DATE: 20241119
